FAERS Safety Report 8384207-7 (Version None)
Quarter: 2012Q2

REPORT INFORMATION
  Report Type: 
  Country: None (occurrence: None)
  Receive Date: 20120524
  Receipt Date: 20120521
  Transmission Date: 20120825
  Serious: No
  Sender: FDA-Public Use
  Company Number: US-PFIZER INC-2012123883

PATIENT
  Sex: Female
  Weight: 59.41 kg

DRUGS (4)
  1. LEVOTHYROXINE [Concomitant]
     Indication: THYROID DISORDER
     Dosage: 1 MG,DAILY
  2. LYRICA [Concomitant]
     Indication: NEURALGIA
     Dosage: 150 MG,DAILY
  3. LOVASTATIN [Concomitant]
     Indication: BLOOD CHOLESTEROL INCREASED
     Dosage: UNK
  4. ESTRING [Suspect]
     Indication: ATROPHIC VULVOVAGINITIS
     Dosage: UNK

REACTIONS (1)
  - SENSATION OF HEAVINESS [None]
